FAERS Safety Report 9849958 (Version 1)
Quarter: 2013Q4

REPORT INFORMATION
  Report Type: Spontaneous
  Country: US (occurrence: None)
  Receive Date: 20131224
  Receipt Date: 20131224
  Transmission Date: 20140711
  Serious: Yes (Other)
  Sender: FDA-Public Use
  Company Number: 20130292

PATIENT
  Age: 45 Year
  Sex: Female

DRUGS (2)
  1. VENOFER (IRON SUCROSE INJECTION, USP) (2340-10) 20 MG/ML [Suspect]
     Indication: PRODUCT USED FOR UNKNOWN INDICATION
     Dosage: 300 MG OVER 4 HRS
  2. ALEVE (NAPROXEN SODIUM) TABLET [Suspect]
     Route: 042

REACTIONS (3)
  - Urticaria [None]
  - Loss of consciousness [None]
  - Myalgia [None]
